FAERS Safety Report 7532479-0 (Version None)
Quarter: 2011Q2

REPORT INFORMATION
  Report Type: 
  Country: None (occurrence: None)
  Receive Date: 20110608
  Receipt Date: 20110526
  Transmission Date: 20111010
  Serious: Yes (Other)
  Sender: FDA-Public Use
  Company Number: PHFR2011GB03330

PATIENT
  Age: 32 Year
  Sex: Male

DRUGS (2)
  1. CLOZAPINE [Suspect]
     Dosage: UNK
     Dates: start: 20100101, end: 20110101
  2. CLOZAPINE [Suspect]
     Dates: end: 20100101

REACTIONS (4)
  - SWELLING FACE [None]
  - MENTAL IMPAIRMENT [None]
  - ANGIOEDEMA [None]
  - SCROTAL SWELLING [None]
